FAERS Safety Report 10460425 (Version 1)
Quarter: 2014Q3

REPORT INFORMATION
  Report Type: Spontaneous
  Country: US (occurrence: US)
  Receive Date: 20140917
  Receipt Date: 20140917
  Transmission Date: 20150326
  Serious: No
  Sender: FDA-Public Use
  Company Number: US-009507513-1409USA003698

PATIENT

DRUGS (1)
  1. IVEMEND [Suspect]
     Active Substance: FOSAPREPITANT DIMEGLUMINE
     Dosage: 150 MG, UNK
     Route: 042

REACTIONS (3)
  - Lacrimation increased [Recovered/Resolved]
  - Cough [Recovered/Resolved]
  - Eye pruritus [Recovered/Resolved]
